FAERS Safety Report 4457813-X (Version None)
Quarter: 2004Q3

REPORT INFORMATION
  Report Type: 
  Country: None (occurrence: None)
  Receive Date: 20040922
  Receipt Date: 20040913
  Transmission Date: 20050211
  Serious: Yes (Death, Hospitalization)
  Sender: FDA-Public Use
  Company Number: K200401384

PATIENT
  Age: 81 Year
  Sex: Male

DRUGS (12)
  1. ALTACE [Suspect]
     Dosage: ORAL
     Route: 048
     Dates: start: 20040723, end: 20040803
  2. TRAMADOL HCL [Suspect]
     Dosage: ORAL
     Route: 048
     Dates: start: 20040701, end: 20040803
  3. FUROSEMIDE [Suspect]
     Dosage: ORAL
     Route: 048
     Dates: start: 20040723, end: 20040803
  4. ALDACTONE [Suspect]
     Dosage: ORAL
     Route: 048
     Dates: start: 20040701, end: 20040803
  5. POTASSIUM CHLORIDE [Suspect]
     Dosage: ORAL
     Route: 048
     Dates: start: 20040723, end: 20040803
  6. KARDEGIC (ACETYLSALICYLATE LYSINE) POWDER (EXCEPT [DPO]) [Suspect]
     Dosage: ORAL
     Route: 048
     Dates: start: 20040723, end: 20040803
  7. TORENTAL (PENTOXIFYLLINE) [Concomitant]
  8. LOVENOX [Concomitant]
  9. FONZYLANE (BUFLOMEDIL HYDROCHLORIDE) [Concomitant]
  10. DIGOXIN [Concomitant]
  11. PLAVIX [Concomitant]
  12. FRAXODI (NADROPARIN CALCIUM) [Concomitant]

REACTIONS (13)
  - BLOOD CREATINE PHOSPHOKINASE INCREASED [None]
  - COAGULATION FACTOR V LEVEL DECREASED [None]
  - CYANOSIS [None]
  - CYTOLYTIC HEPATITIS [None]
  - GAMMA-GLUTAMYLTRANSFERASE INCREASED [None]
  - HEPATIC FAILURE [None]
  - HEPATITIS FULMINANT [None]
  - JUGULAR VEIN DISTENSION [None]
  - OEDEMA PERIPHERAL [None]
  - RENAL FAILURE ACUTE [None]
  - SHOCK [None]
  - SKIN ULCER [None]
  - URINARY RETENTION [None]
